FAERS Safety Report 7656509-0 (Version None)
Quarter: 2011Q3

REPORT INFORMATION
  Report Type: 
  Country: None (occurrence: None)
  Receive Date: 20110804
  Receipt Date: 20100917
  Transmission Date: 20111222
  Serious: No
  Sender: FDA-Public Use
  Company Number: US-BAUSCH-2010BL005244

PATIENT
  Age: 66 Year
  Sex: Female

DRUGS (3)
  1. OPCON-A [Suspect]
     Indication: HYPERSENSITIVITY
     Route: 047
     Dates: start: 20100901, end: 20100901
  2. LISINOPRIL [Concomitant]
     Indication: HYPERTENSION
     Route: 048
  3. LASIX [Concomitant]
     Indication: HYPERTENSION
     Route: 048

REACTIONS (2)
  - ABNORMAL SENSATION IN EYE [None]
  - EYE PAIN [None]
